FAERS Safety Report 14616557 (Version 3)
Quarter: 2018Q1

REPORT INFORMATION
  Report Type: Report from Study
  Country: US (occurrence: US)
  Receive Date: 20180309
  Receipt Date: 20180323
  Transmission Date: 20180509
  Serious: Yes (Hospitalization, Other)
  Sender: FDA-Public Use
  Company Number: US-ROCHE-2011068

PATIENT
  Age: 44 Year
  Sex: Male
  Weight: 85.5 kg

DRUGS (30)
  1. BEVACIZUMAB. [Suspect]
     Active Substance: BEVACIZUMAB
     Route: 042
     Dates: start: 20160608, end: 20170726
  2. TEMOZOLOMIDE. [Suspect]
     Active Substance: TEMOZOLOMIDE
     Indication: NEUROENDOCRINE CARCINOMA METASTATIC
     Dosage: ON DAY 10 AND DAY 14
     Route: 048
     Dates: start: 20171011
  3. MAGNESIUM CITRATE. [Concomitant]
     Active Substance: MAGNESIUM CITRATE
     Dosage: TAKE 1 TAB BY MOUTH
     Route: 048
  4. BEVACIZUMAB. [Suspect]
     Active Substance: BEVACIZUMAB
     Indication: NEUROENDOCRINE CARCINOMA METASTATIC
     Dosage: 25 MG/ML
     Route: 042
     Dates: start: 20171011
  5. SENNA [Concomitant]
     Active Substance: SENNA LEAF\SENNOSIDES\SENNOSIDES A AND B
     Route: 048
  6. METRONIDAZOLE. [Concomitant]
     Active Substance: METRONIDAZOLE
     Route: 048
     Dates: start: 20171227, end: 20180103
  7. FLUOROURACIL. [Concomitant]
     Active Substance: FLUOROURACIL
     Route: 042
     Dates: start: 20171222
  8. TEMOZOLOMIDE. [Suspect]
     Active Substance: TEMOZOLOMIDE
     Dosage: ON DAY 10-14
     Route: 048
     Dates: start: 20160608, end: 20171121
  9. ALBUTEROL. [Concomitant]
     Active Substance: ALBUTEROL
     Indication: WHEEZING
  10. ONDANSETRON [Concomitant]
     Active Substance: ONDANSETRON
     Dosage: AS NEEDED
     Route: 048
  11. POLYETHYLENE GLYCOL [Concomitant]
     Active Substance: POLYETHYLENE GLYCOLS
  12. FOLINIC ACID [Concomitant]
     Active Substance: LEUCOVORIN
     Route: 042
     Dates: start: 20171222
  13. ONDANSETRON [Concomitant]
     Active Substance: ONDANSETRON
     Route: 048
  14. PROCHLORPERAZINE. [Concomitant]
     Active Substance: PROCHLORPERAZINE
  15. IBUPROFEN. [Concomitant]
     Active Substance: IBUPROFEN
     Indication: PAIN
     Dosage: 600 MG BY MOUTH DAILY AS NEED
     Route: 048
     Dates: start: 20171227
  16. OXYCODONE HYDROCHLORIDE. [Concomitant]
     Active Substance: OXYCODONE HYDROCHLORIDE
     Route: 048
     Dates: start: 20171227
  17. PROCHLORPERAZINE. [Concomitant]
     Active Substance: PROCHLORPERAZINE
     Dosage: 1 TAB BY MOUTH EVERY 6 HOURS AS NEEDED?3 REFILLS
     Route: 048
     Dates: start: 20171227
  18. OXALIPLATIN. [Concomitant]
     Active Substance: OXALIPLATIN
     Route: 042
  19. CAPECITABINE. [Suspect]
     Active Substance: CAPECITABINE
     Route: 048
     Dates: start: 20160608, end: 20170808
  20. TRAZODONE [Concomitant]
     Active Substance: TRAZODONE HYDROCHLORIDE
  21. CIPROFLOXACIN HCL [Concomitant]
     Active Substance: CIPROFLOXACIN HYDROCHLORIDE
     Dosage: 1 TAB BY MOUTH 2 TIMES IN A DAY FOR 7 DAYS?ANTIBOITIC , HAVE TO TAKE  HOURS APART FROM ANY MULTIVITA
     Route: 048
     Dates: start: 20171227, end: 20180103
  22. DOCUSATE [Concomitant]
     Active Substance: DOCUSATE
     Route: 048
     Dates: start: 20171227
  23. LORATADINE/PSEUDOEPHEDRINE [Concomitant]
     Active Substance: LORATADINE\PSEUDOEPHEDRINE SULFATE
  24. SIMETHICON [Concomitant]
     Active Substance: DIMETHICONE
     Dosage: 2 TABS BY MOUTH 3 TIMES A DAY AFTER MEALS
     Route: 048
     Dates: start: 20171227
  25. CAPECITABINE. [Suspect]
     Active Substance: CAPECITABINE
     Indication: NEUROENDOCRINE CARCINOMA METASTATIC
     Route: 048
     Dates: start: 20171010, end: 20171024
  26. ALBUTEROL. [Concomitant]
     Active Substance: ALBUTEROL
     Indication: BRONCHOSPASM
     Dosage: 1 PUFF BY INHALATION ROUTE EVERY 4 HOURS AS NEEDEED
     Route: 065
  27. LISINOPRIL. [Concomitant]
     Active Substance: LISINOPRIL
  28. LACTULOSE. [Concomitant]
     Active Substance: LACTULOSE
     Dosage: 20 GRAM/30 ML
     Route: 065
     Dates: start: 20171227
  29. OXYCODONE [Concomitant]
     Active Substance: OXYCODONE
     Dosage: 2 TABS BY MOUTH EVERY 3 TO 4 HOURS AS NEEDED
     Route: 048
     Dates: start: 20171227
  30. POLYETHYLENE GLYCOL [Concomitant]
     Active Substance: POLYETHYLENE GLYCOLS
     Dosage: 1 PACKET BY MOUTH?3 REFILLS
     Route: 048
     Dates: start: 20171227

REACTIONS (12)
  - Acute kidney injury [Recovered/Resolved]
  - Metastases to liver [Unknown]
  - Abdominal pain [Recovered/Resolved]
  - Connective tissue disorder [Recovered/Resolved]
  - Rhabdomyolysis [Unknown]
  - Lung infection [Unknown]
  - Spinal fracture [Unknown]
  - Pneumonia [Unknown]
  - Abdominal pain [Unknown]
  - Road traffic accident [Unknown]
  - Musculoskeletal disorder [Recovered/Resolved]
  - Asthenia [Unknown]

NARRATIVE: CASE EVENT DATE: 20170815
